FAERS Safety Report 4394651-0 (Version None)
Quarter: 2004Q3

REPORT INFORMATION
  Report Type: 
  Country: None (occurrence: None)
  Receive Date: 20040706
  Receipt Date: 20040623
  Transmission Date: 20050211
  Serious: Yes (Hospitalization)
  Sender: FDA-Public Use
  Company Number: 2004042614

PATIENT
  Sex: Male

DRUGS (2)
  1. NARDIL [Suspect]
     Indication: DEPRESSION
  2. NEURONTIN [Suspect]

REACTIONS (7)
  - AFFECTIVE DISORDER [None]
  - ANGER [None]
  - ANXIETY [None]
  - BRADYPHRENIA [None]
  - DEPRESSION [None]
  - DRUG INEFFECTIVE [None]
  - MEMORY IMPAIRMENT [None]
